FAERS Safety Report 7211613-6 (Version None)
Quarter: 2010Q4

REPORT INFORMATION
  Report Type: 
  Country: None (occurrence: None)
  Receive Date: 20101228
  Receipt Date: 20101213
  Transmission Date: 20110411
  Serious: Yes (Death)
  Sender: FDA-Public Use
  Company Number: 012344

PATIENT
  Age: 94 Year
  Sex: Female

DRUGS (3)
  1. CILOSTAZOL [Suspect]
     Indication: ARTERIOSCLEROSIS OBLITERANS
     Dosage: ORAL
     Route: 048
  2. MANIDIPINE HYDROCHLORIDE (MANIDIPINE HYDROCHLORIDE) [Concomitant]
  3. PERINDOPRIL (PERINDOPRIL ERBUMINE) TABLET [Concomitant]

REACTIONS (2)
  - AORTIC ANEURYSM RUPTURE [None]
  - SHOCK HAEMORRHAGIC [None]
